FAERS Safety Report 18160801 (Version 1)
Quarter: 2020Q3

REPORT INFORMATION
  Report Type: Spontaneous
  Country: US (occurrence: US)
  Receive Date: 20200818
  Receipt Date: 20200818
  Transmission Date: 20201103
  Serious: No
  Sender: FDA-Public Use
  Company Number: US-COLGATE PALMOLIVE COMPANY-20190701918

PATIENT
  Sex: Male

DRUGS (1)
  1. COLGATE TOTAL CLEAN IN BETWEEN [Suspect]
     Active Substance: SODIUM FLUORIDE\TRICLOSAN
     Dosage: FILLS TB HEAD AND BRUSHES FOR ABOUT 2?3 MINUTES
     Route: 048
     Dates: start: 2019, end: 2019

REACTIONS (1)
  - Oral discomfort [Recovered/Resolved]

NARRATIVE: CASE EVENT DATE: 2019
